FAERS Safety Report 9975743 (Version 1)
Quarter: 2014Q1

REPORT INFORMATION
  Report Type: Other
  Country: US (occurrence: US)
  Receive Date: 20140306
  Receipt Date: 20140306
  Transmission Date: 20141002
  Serious: Yes (Death)
  Sender: FDA-Public Use
  Company Number: US-FRI-1000054886

PATIENT
  Age: 56 Year
  Sex: Male

DRUGS (4)
  1. CITALOPRAM [Suspect]
  2. NORTRIPTYLINE [Suspect]
  3. PROMETHAZINE [Suspect]
  4. METOPROLOL [Suspect]

REACTIONS (1)
  - Death [Fatal]
